FAERS Safety Report 8306002-7 (Version None)
Quarter: 2012Q1

REPORT INFORMATION
  Report Type: 
  Country: None (occurrence: None)
  Receive Date: 20120326
  Receipt Date: 20110517
  Transmission Date: 20120608
  Serious: Yes (Other)
  Sender: FDA-Public Use
  Company Number: PHHY2011US39044

PATIENT
  Age: 59 Year
  Sex: Male

DRUGS (1)
  1. TASIGNA [Suspect]
     Indication: CHRONIC MYELOID LEUKAEMIA
     Dosage: 400 MG, BID, ORAL
     Route: 048
     Dates: start: 20110126, end: 20110419

REACTIONS (2)
  - THROMBOCYTOPENIA [None]
  - BLOOD PRESSURE ABNORMAL [None]
